FAERS Safety Report 5155427-X (Version None)
Quarter: 2006Q4

REPORT INFORMATION
  Report Type: 
  Country: None (occurrence: None)
  Receive Date: 20061121
  Receipt Date: 20060927
  Transmission Date: 20070319
  Serious: Yes (Disabling, Other)
  Sender: FDA-Public Use
  Company Number: PHBS2006JP15244

PATIENT
  Age: 63 Year
  Sex: Female

DRUGS (14)
  1. LANSOPRAZOLE [Concomitant]
     Dosage: 2 DF/DAY
     Route: 048
  2. SIGMART [Concomitant]
     Dosage: 4 DF/DAY
     Route: 048
  3. FLUITRAN [Concomitant]
     Dosage: 2 DF/DAY
     Route: 048
  4. ALDACTONE [Concomitant]
     Dosage: 4 DF/DAY
     Route: 048
  5. GASCON [Concomitant]
     Dosage: 3 DF/DAY
     Route: 048
  6. WARFARIN SODIUM [Concomitant]
     Dosage: 3 DF/DAY
     Route: 048
  7. MUCOSOLVAN [Concomitant]
     Dosage: 1 DF/DAY
     Route: 048
  8. SLOW-K [Concomitant]
     Dosage: 8 DF/DAY
     Route: 048
  9. THEO-DUR [Concomitant]
     Dosage: 2 DF/DAY
     Route: 048
  10. GLYCERIN [Concomitant]
     Dosage: 1 DF/DAY
     Route: 048
  11. ATARAX [Concomitant]
     Dosage: 1 DF/DAY
     Route: 048
  12. LACTULOSE [Concomitant]
     Dosage: 60 ML/DAY
     Route: 048
  13. LAXOBERON [Concomitant]
     Dosage: 2 DF/DAY
     Route: 048
  14. TEGRETOL [Suspect]
     Indication: EPILEPSY
     Dosage: 200 MG/DAY
     Route: 048
     Dates: end: 20061002

REACTIONS (2)
  - COMA HEPATIC [None]
  - HYPERAMMONAEMIA [None]
